FAERS Safety Report 5205656-1 (Version None)
Quarter: 2007Q1

REPORT INFORMATION
  Report Type: 
  Country: None (occurrence: None)
  Receive Date: 20070105
  Receipt Date: 20070105
  Transmission Date: 20070707
  Serious: Yes (Hospitalization)
  Sender: FDA-Public Use
  Company Number: None

PATIENT
  Sex: Female
  Weight: 58.1 kg

DRUGS (14)
  1. WARFARIN SODIUM [Suspect]
     Indication: PROPHYLAXIS
     Dosage: 5MG PO QD
     Route: 048
  2. WARFARIN SODIUM [Suspect]
     Indication: PULMONARY EMBOLISM
     Dosage: 5MG PO QD
     Route: 048
  3. BOSENTAN [Suspect]
     Indication: PULMONARY HYPERTENSION
  4. NIFEDIPINE [Concomitant]
  5. CALCIUM [Concomitant]
  6. DIGOXIN [Concomitant]
  7. ALENDRONATE SODIUM [Concomitant]
  8. ISOSORBIDE [Concomitant]
  9. FUROSEMIDE [Concomitant]
  10. OMEPRAZOLE [Concomitant]
  11. PREDNISONE [Concomitant]
  12. POTASSIUM CHLORIDE [Concomitant]
  13. WARFARIN SODIUM [Concomitant]
  14. BOSENTAN [Concomitant]

REACTIONS (6)
  - ASTHENIA [None]
  - DECREASED APPETITE [None]
  - DYSPNOEA [None]
  - HAEMATOCRIT DECREASED [None]
  - HAEMOGLOBIN DECREASED [None]
  - INTERNATIONAL NORMALISED RATIO INCREASED [None]
